FAERS Safety Report 4342657-X (Version None)
Quarter: 2004Q1

REPORT INFORMATION
  Report Type: 
  Country: None (occurrence: None)
  Receive Date: 20040213
  Receipt Date: 20031103
  Transmission Date: 20041129
  Serious: Yes (Other)
  Sender: FDA-Public Use
  Company Number: 351024

PATIENT
  Age: 47 Year
  Sex: Male

DRUGS (2)
  1. PEGASYS [Suspect]
     Indication: HEPATITIS C
     Dosage: SUBCUTANEOUS
     Route: 058
     Dates: start: 20040808
  2. COPEGUS [Suspect]
     Indication: HEPATITIS C
     Dosage: 600 MG 2 PER DAY, ORAL
     Route: 048
     Dates: start: 20030808

REACTIONS (5)
  - EYE INFECTION [None]
  - NEUTROPHIL COUNT DECREASED [None]
  - PRURITUS [None]
  - RASH [None]
  - WHITE BLOOD CELL COUNT DECREASED [None]
